FAERS Safety Report 15680105 (Version 1)
Quarter: 2018Q4

REPORT INFORMATION
  Report Type: Spontaneous
  Country: US (occurrence: US)
  Receive Date: 20181203
  Receipt Date: 20181203
  Transmission Date: 20190205
  Serious: Yes (Hospitalization)
  Sender: FDA-Public Use
  Company Number: US-US WORLDMEDS, LLC-USW201811-001764

PATIENT
  Age: 66 Year
  Sex: Male

DRUGS (3)
  1. FENTANYL. [Concomitant]
     Active Substance: FENTANYL
  2. VALIUM [Concomitant]
     Active Substance: DIAZEPAM
  3. LUCEMYRA [Suspect]
     Active Substance: LOFEXIDINE
     Dates: start: 20181108

REACTIONS (4)
  - Atrial fibrillation [Unknown]
  - Myocardial infarction [Unknown]
  - Ventricular tachycardia [Unknown]
  - Prescribed underdose [Unknown]

NARRATIVE: CASE EVENT DATE: 20181108
